FAERS Safety Report 21791539 (Version 1)
Quarter: 2022Q4

REPORT INFORMATION
  Report Type: Report from Study
  Country: US (occurrence: US)
  Receive Date: 20221228
  Receipt Date: 20221228
  Transmission Date: 20230113
  Serious: Yes (Hospitalization)
  Sender: FDA-Public Use
  Company Number: US-ABBVIE-4251445

PATIENT
  Age: 73 Year
  Sex: Female

DRUGS (4)
  1. IMBRUVICA [Suspect]
     Active Substance: IBRUTINIB
     Indication: B-cell small lymphocytic lymphoma
     Dosage: FOR 2 WEEKS?LAST ADMIN DATE- 2019
     Route: 048
     Dates: start: 20190122
  2. IMBRUVICA [Suspect]
     Active Substance: IBRUTINIB
     Indication: B-cell small lymphocytic lymphoma
     Dosage: DOSE INCREASE TO 280MG DAILY?FIRST ADMIN DATE- 2019
     Route: 048
     Dates: end: 20190418
  3. IMBRUVICA [Suspect]
     Active Substance: IBRUTINIB
     Indication: B-cell small lymphocytic lymphoma
     Dosage: FIRST ADMIN DATE-2019?140MG DAILY
     Route: 048
     Dates: end: 20190617
  4. IMBRUVICA [Suspect]
     Active Substance: IBRUTINIB
     Indication: B-cell small lymphocytic lymphoma
     Dosage: 280MG DAILY?FIRST ADMIN DATE- 2019
     Route: 048

REACTIONS (5)
  - Fall [Unknown]
  - Hypoaesthesia [Unknown]
  - Walking aid user [Unknown]
  - Erythema [Unknown]
  - Cough [Unknown]

NARRATIVE: CASE EVENT DATE: 20221227
